FAERS Safety Report 12873870 (Version 1)
Quarter: 2016Q4

REPORT INFORMATION
  Report Type: Spontaneous
  Country: US (occurrence: US)
  Receive Date: 20161021
  Receipt Date: 20161021
  Transmission Date: 20170207
  Serious: No
  Sender: FDA-Public Use
  Company Number: US-ALLERGAN-1650639

PATIENT
  Sex: Male

DRUGS (1)
  1. LIPASE;AMYLASE;PROTEASE UNK [Suspect]
     Active Substance: AMYLASE\LIPASE\PROTEASE
     Indication: PRODUCT USED FOR UNKNOWN INDICATION
     Dosage: 40000 IU, UNKNOWN
     Route: 048

REACTIONS (1)
  - Syncope [Unknown]
